FAERS Safety Report 12559393 (Version 2)
Quarter: 2016Q3

REPORT INFORMATION
  Report Type: Spontaneous
  Country: FR (occurrence: FR)
  Receive Date: 20160715
  Receipt Date: 20160817
  Transmission Date: 20161109
  Serious: Yes (Hospitalization)
  Sender: FDA-Public Use
  Company Number: FR-009507513-1607FRA005587

PATIENT
  Age: 77 Year
  Sex: Male

DRUGS (8)
  1. MEMANTINE. [Suspect]
     Active Substance: MEMANTINE
     Dosage: 1 DF, QD
     Route: 048
     Dates: end: 20160625
  2. GUTRON [Concomitant]
     Active Substance: MIDODRINE
     Dosage: UNK
     Route: 065
  3. SINEMET [Suspect]
     Active Substance: CARBIDOPA\LEVODOPA
     Indication: NERVOUS SYSTEM DISORDER
     Dosage: 0.5 DF, TID
     Route: 048
     Dates: end: 20160625
  4. SINEMET [Suspect]
     Active Substance: CARBIDOPA\LEVODOPA
     Dosage: HALF A TABLET, ONCE A DAY DURING ONE WEEK
     Route: 048
     Dates: start: 2016, end: 2016
  5. SINEMET [Suspect]
     Active Substance: CARBIDOPA\LEVODOPA
     Dosage: HALF A TABLET, TWICE A DAY DURING ONE WEEK
     Route: 048
     Dates: start: 2016, end: 2016
  6. SINEMET [Suspect]
     Active Substance: CARBIDOPA\LEVODOPA
     Dosage: HALF A TABLET, THRICE A DAY.
     Route: 048
     Dates: start: 2016
  7. TAHOR [Concomitant]
     Active Substance: ATORVASTATIN CALCIUM
     Dosage: UNK
     Route: 065
  8. PLAVIX [Concomitant]
     Active Substance: CLOPIDOGREL BISULFATE
     Dosage: UNK
     Route: 065

REACTIONS (3)
  - Nausea [Recovered/Resolved]
  - Eating disorder [Recovered/Resolved]
  - Decreased appetite [Recovered/Resolved]

NARRATIVE: CASE EVENT DATE: 20160625
